FAERS Safety Report 24977157 (Version 1)
Quarter: 2025Q1

REPORT INFORMATION
  Report Type: Spontaneous
  Country: DE (occurrence: DE)
  Receive Date: 20250217
  Receipt Date: 20250217
  Transmission Date: 20250408
  Serious: Yes (Hospitalization, Other)
  Sender: ELI LILLY AND COMPANY
  Company Number: DE-ELI_LILLY_AND_COMPANY-DE202502005797

PATIENT
  Sex: Female

DRUGS (5)
  1. ABEMACICLIB [Suspect]
     Active Substance: ABEMACICLIB
     Indication: Product used for unknown indication
     Route: 065
     Dates: start: 20230913, end: 20240215
  2. CAPECITABINE [Suspect]
     Active Substance: CAPECITABINE
     Indication: Product used for unknown indication
     Route: 048
  3. DENOSUMAB [Concomitant]
     Active Substance: DENOSUMAB
     Indication: Product used for unknown indication
  4. GOSERELIN [Concomitant]
     Active Substance: GOSERELIN
     Indication: Product used for unknown indication
  5. TRASTUZUMAB DERUXTECAN [Concomitant]
     Active Substance: TRASTUZUMAB DERUXTECAN
     Indication: Product used for unknown indication

REACTIONS (18)
  - Suicide attempt [Unknown]
  - Malignant neoplasm progression [Unknown]
  - Breast fibrosis [Unknown]
  - Breast pain [Unknown]
  - Joint deposit [Unknown]
  - Spinal disorder [Unknown]
  - Posture abnormal [Unknown]
  - Kidney enlargement [Unknown]
  - Bone metabolism disorder [Unknown]
  - Mental disorder [Unknown]
  - Limb discomfort [Unknown]
  - Food poisoning [Unknown]
  - Oral disorder [Unknown]
  - Osteoarthritis [Unknown]
  - Osteochondrosis [Unknown]
  - Product intolerance [Unknown]
  - Anxiety [Unknown]
  - Diarrhoea [Unknown]

NARRATIVE: CASE EVENT DATE: 20231115
